FAERS Safety Report 13010253 (Version 1)
Quarter: 2016Q4

REPORT INFORMATION
  Report Type: Spontaneous
  Country: US (occurrence: US)
  Receive Date: 20161208
  Receipt Date: 20161208
  Transmission Date: 20170207
  Serious: Yes (Hospitalization, Other)
  Sender: FDA-Public Use
  Company Number: US-SAOL THERAPEUTICS-2016SAO01185

PATIENT
  Age: 59 Year
  Sex: Male
  Weight: 65.76 kg

DRUGS (10)
  1. LIORESAL [Suspect]
     Active Substance: BACLOFEN
     Indication: MUSCLE SPASTICITY
     Dosage: 804.7 ?G, \DAY
     Route: 037
  2. LIORESAL [Suspect]
     Active Substance: BACLOFEN
     Indication: MULTIPLE SCLEROSIS
  3. AMITRIPTYLINE [Concomitant]
     Active Substance: AMITRIPTYLINE
     Dosage: 25 MG, 2X/DAY
     Route: 048
  4. HYDROCODONE-ACETAMINOPHEN [Concomitant]
     Active Substance: ACETAMINOPHEN\HYDROCODONE
     Dosage: UNK
     Route: 048
     Dates: start: 20120419
  5. IBUPROFEN. [Concomitant]
     Active Substance: IBUPROFEN
     Dosage: UNK
     Route: 048
     Dates: start: 20120419
  6. PRILOSEC [Concomitant]
     Active Substance: OMEPRAZOLE MAGNESIUM
     Dosage: 20 MG, 1X/DAY
     Route: 048
  7. CALCIUM CARBONATE. [Concomitant]
     Active Substance: CALCIUM CARBONATE
     Dosage: 500 MG, UP TO 3X/DAY
     Route: 048
     Dates: start: 20100421
  8. ESOMEPRAZOLE [Concomitant]
     Active Substance: ESOMEPRAZOLE
     Dosage: 2 CAPSULES, 1X/DAY
     Route: 048
     Dates: start: 20100421
  9. IPRATROPUM [Concomitant]
     Dosage: 2.5 ML, UP TO 4X/DAY
     Route: 055
     Dates: start: 20100421
  10. ALBUTEROL. [Concomitant]
     Active Substance: ALBUTEROL
     Dosage: 0.5 ML, UP TO 6X/DAY
     Route: 055
     Dates: start: 20100421

REACTIONS (15)
  - Therapeutic response decreased [Unknown]
  - Dizziness [Unknown]
  - Unresponsive to stimuli [Unknown]
  - Lumbar spinal stenosis [Unknown]
  - Nerve compression [Unknown]
  - Abdominal distension [Unknown]
  - Vomiting [Unknown]
  - Device kink [Recovered/Resolved]
  - Ataxia [Unknown]
  - Oedema peripheral [Unknown]
  - Device dislocation [Unknown]
  - Scoliosis [Unknown]
  - Abdominal pain [Unknown]
  - Spinal claudication [Unknown]
  - Nausea [Unknown]

NARRATIVE: CASE EVENT DATE: 200602
